FAERS Safety Report 7979131-5 (Version None)
Quarter: 2011Q4

REPORT INFORMATION
  Report Type: 
  Country: None (occurrence: None)
  Receive Date: 20111201
  Receipt Date: 20111118
  Transmission Date: 20120403
  Serious: Yes (Death, Hospitalization)
  Sender: FDA-Public Use
  Company Number: 2011MA016630

PATIENT
  Sex: Male

DRUGS (12)
  1. REMERON [Concomitant]
  2. ZOCOR [Concomitant]
  3. ASPIRIN [Concomitant]
  4. MEGACE [Concomitant]
  5. SPIRONOLACTONE [Concomitant]
  6. DIGOXIN [Suspect]
     Indication: CARDIAC FAILURE CONGESTIVE
     Dosage: 0.25 MG;QD;PO
     Route: 048
     Dates: start: 20070525, end: 20080201
  7. BIDIL [Concomitant]
  8. NITROGLYCERIN [Concomitant]
  9. POTASSIUM CHLORIDE [Concomitant]
  10. METOPROLOL TARTRATE [Concomitant]
  11. PLAVIX [Concomitant]
  12. ZAROXOLYN [Concomitant]

REACTIONS (22)
  - NAUSEA [None]
  - SYNCOPE [None]
  - DYSLIPIDAEMIA [None]
  - DIARRHOEA [None]
  - DEHYDRATION [None]
  - HYPOTENSION [None]
  - CARDIAC FAILURE CONGESTIVE [None]
  - RENAL FAILURE [None]
  - UNEVALUABLE EVENT [None]
  - MYOCARDIAL INFARCTION [None]
  - IMPLANTABLE DEFIBRILLATOR INSERTION [None]
  - CHRONIC OBSTRUCTIVE PULMONARY DISEASE [None]
  - MYOCARDIAL ISCHAEMIA [None]
  - DECREASED APPETITE [None]
  - FATIGUE [None]
  - VOMITING [None]
  - ARTERIOSCLEROSIS CORONARY ARTERY [None]
  - ACUTE CORONARY SYNDROME [None]
  - GASTROENTERITIS [None]
  - HYPERTENSION [None]
  - INJURY [None]
  - CONDITION AGGRAVATED [None]
